FAERS Safety Report 23722939 (Version 2)
Quarter: 2024Q2

REPORT INFORMATION
  Report Type: Spontaneous
  Country: US (occurrence: US)
  Receive Date: 20240409
  Receipt Date: 20240415
  Transmission Date: 20240715
  Serious: Yes (Other)
  Sender: FDA-Public Use
  Company Number: US-MLMSERVICE-20240328-4917683-1

PATIENT
  Age: 63 Year
  Sex: Male

DRUGS (1)
  1. EPINEPHRINE [Suspect]
     Active Substance: EPINEPHRINE
     Indication: Bradycardia
     Dosage: PUSHES

REACTIONS (4)
  - Troponin increased [Unknown]
  - Vasospasm [Unknown]
  - Off label use [Unknown]
  - Drug effective for unapproved indication [Unknown]
